FAERS Safety Report 4863610-3 (Version None)
Quarter: 2005Q4

REPORT INFORMATION
  Report Type: 
  Country: None (occurrence: None)
  Receive Date: 20051222
  Receipt Date: 20050523
  Transmission Date: 20060501
  Serious: No
  Sender: FDA-Public Use
  Company Number: US-GLAXOSMITHKLINE-A0559769A

PATIENT
  Age: 73 Year
  Sex: Male

DRUGS (3)
  1. FLONASE [Suspect]
     Indication: DRUG USE FOR UNKNOWN INDICATION
     Dosage: 2PUFF TWICE PER DAY
     Route: 045
  2. MUCINEX [Concomitant]
  3. COUGH MEDICATION [Concomitant]

REACTIONS (1)
  - HEADACHE [None]
